FAERS Safety Report 11713480 (Version 1)
Quarter: 2015Q4

REPORT INFORMATION
  Report Type: Spontaneous
  Country: US (occurrence: US)
  Receive Date: 20151109
  Receipt Date: 20151109
  Transmission Date: 20160304
  Serious: No
  Sender: FDA-Public Use
  Company Number: US-009507513-1510USA014451

PATIENT
  Age: 19 Year
  Sex: Female
  Weight: 111.57 kg

DRUGS (1)
  1. NEXPLANON [Suspect]
     Active Substance: ETONOGESTREL
     Indication: CONTRACEPTION
     Dosage: UNK
     Route: 059
     Dates: start: 20150829

REACTIONS (7)
  - Thrombosis [Unknown]
  - Implant site irritation [Unknown]
  - Nausea [Unknown]
  - Implant site pain [Unknown]
  - Weight decreased [Unknown]
  - Implant site pruritus [Unknown]
  - Abdominal pain upper [Unknown]

NARRATIVE: CASE EVENT DATE: 2015
